FAERS Safety Report 6340553-X (Version None)
Quarter: 2009Q3

REPORT INFORMATION
  Report Type: 
  Country: None (occurrence: None)
  Receive Date: 20090904
  Receipt Date: 20090827
  Transmission Date: 20100115
  Serious: Yes (Other)
  Sender: FDA-Public Use
  Company Number: US-JNJFOC-20061202072

PATIENT
  Sex: Male

DRUGS (4)
  1. RISPERDAL [Suspect]
     Indication: SCHIZOPHRENIA
     Route: 065
  2. SEROQUEL [Suspect]
     Indication: SLEEP DISORDER
     Route: 065
  3. ZYPREXA [Suspect]
     Indication: SCHIZOPHRENIA
     Route: 065
  4. RISPERDAL CONSTA [Suspect]
     Indication: SCHIZOPHRENIA
     Route: 030

REACTIONS (1)
  - TYPE 2 DIABETES MELLITUS [None]
